FAERS Safety Report 8169630-8 (Version None)
Quarter: 2012Q1

REPORT INFORMATION
  Report Type: 
  Country: None (occurrence: None)
  Receive Date: 20120228
  Receipt Date: 20120221
  Transmission Date: 20120608
  Serious: No
  Sender: FDA-Public Use
  Company Number: US-PFIZER INC-2012047929

PATIENT
  Sex: Male

DRUGS (4)
  1. TRAZODONE HCL [Suspect]
     Dosage: UNK
  2. DOXEPIN HCL [Suspect]
     Dosage: UNK
  3. HALDOL [Suspect]
     Dosage: UNK
  4. VALPROIC ACID [Suspect]
     Dosage: UNK

REACTIONS (1)
  - DRUG HYPERSENSITIVITY [None]
